FAERS Safety Report 21155629 (Version 1)
Quarter: 2022Q3

REPORT INFORMATION
  Report Type: Spontaneous
  Country: IT (occurrence: None)
  Receive Date: 20220801
  Receipt Date: 20220801
  Transmission Date: 20221027
  Serious: Yes (Other)
  Sender: FDA-Public Use
  Company Number: IT-MICRO LABS LIMITED-ML2022-03481

PATIENT
  Age: 70 Year
  Sex: Female

DRUGS (4)
  1. RANOLAZINE [Suspect]
     Active Substance: RANOLAZINE
     Indication: Angina unstable
  2. IVABRADINE [Concomitant]
     Active Substance: IVABRADINE
     Indication: Angina unstable
  3. BISOPROLOL [Concomitant]
     Active Substance: BISOPROLOL
     Indication: Angina unstable
     Dosage: SLOWLY TITRATED TO 5 MG ONCE DAILY
  4. ISOSORBIDE MONONITRATE [Concomitant]
     Active Substance: ISOSORBIDE MONONITRATE
     Indication: Angina unstable
     Dosage: TITRATED UP TO 80 MG TWICE DAILY

REACTIONS (3)
  - Drug ineffective [Unknown]
  - Constipation [Unknown]
  - Dizziness [Unknown]
